FAERS Safety Report 16901174 (Version 2)
Quarter: 2019Q4

REPORT INFORMATION
  Report Type: Spontaneous
  Country: US (occurrence: US)
  Receive Date: 20191009
  Receipt Date: 20191213
  Transmission Date: 20200122
  Serious: No
  Sender: FDA-Public Use
  Company Number: US-BIOMARINAP-US-2019-126017

PATIENT
  Age: 12 Year
  Sex: Male
  Weight: 33.6 kg

DRUGS (1)
  1. NAGLAZYME [Suspect]
     Active Substance: GALSULFASE
     Indication: PRODUCT USED FOR UNKNOWN INDICATION
     Dosage: UNK, QW
     Route: 065
     Dates: start: 20081023

REACTIONS (3)
  - Mobility decreased [Unknown]
  - Device issue [Unknown]
  - Intraocular pressure increased [Unknown]
